FAERS Safety Report 6212033-3 (Version None)
Quarter: 2009Q2

REPORT INFORMATION
  Report Type: 
  Country: None (occurrence: None)
  Receive Date: 20090529
  Receipt Date: 20090511
  Transmission Date: 20091009
  Serious: Yes (Other)
  Sender: FDA-Public Use
  Company Number: JPI-P-007122

PATIENT
  Age: 56 Year
  Sex: Female
  Weight: 70.7611 kg

DRUGS (2)
  1. XYREM [Suspect]
     Indication: NARCOLEPSY
     Dosage: (7.5 GM,1 D),ORAL
     Route: 048
  2. METHYLPHENIDATE HCL [Concomitant]

REACTIONS (5)
  - OBSTRUCTION [None]
  - OXYGEN SATURATION DECREASED [None]
  - SNORING [None]
  - UNEVALUABLE EVENT [None]
  - WEIGHT INCREASED [None]
